FAERS Safety Report 7429729-8 (Version None)
Quarter: 2011Q2

REPORT INFORMATION
  Report Type: 
  Country: None (occurrence: None)
  Receive Date: 20110421
  Receipt Date: 20110412
  Transmission Date: 20111010
  Serious: Yes (Hospitalization)
  Sender: FDA-Public Use
  Company Number: FR-PFIZER INC-2011031887

PATIENT
  Age: 70 Year
  Sex: Male

DRUGS (15)
  1. ROCALTROL [Concomitant]
  2. ACTONEL [Concomitant]
  3. LAROXYL [Concomitant]
  4. RIVOTRIL [Concomitant]
  5. RAPAMUNE [Suspect]
     Dosage: 2 MG, 1X/DAY
     Dates: start: 20090601
  6. COLCHICINE [Concomitant]
  7. LASIX [Concomitant]
  8. ACETAMINOPHEN AND TRAMADOL HCL [Concomitant]
  9. INIPOMP [Concomitant]
  10. MIRCERA [Concomitant]
  11. BISOPROLOL FUMARATE [Concomitant]
  12. DAFALGAN [Concomitant]
  13. XATRAL [Concomitant]
  14. CELLCEPT [Concomitant]
  15. MOPRAL [Concomitant]

REACTIONS (1)
  - PULMONARY GRANULOMA [None]
